FAERS Safety Report 26047324 (Version 3)
Quarter: 2025Q4

REPORT INFORMATION
  Report Type: Spontaneous
  Country: CA (occurrence: CA)
  Receive Date: 20251114
  Receipt Date: 20251204
  Transmission Date: 20260118
  Serious: Yes (Other)
  Sender: PFIZER
  Company Number: CA-PFIZER INC-202500222424

PATIENT
  Age: 62 Year
  Sex: Female

DRUGS (11)
  1. RUXIENCE [Suspect]
     Active Substance: RITUXIMAB-PVVR
     Indication: Rheumatoid arthritis
     Dosage: 1000 MG, SINGLE (1000 MG SINGLE DOSE)
     Route: 042
     Dates: start: 20210210, end: 20210210
  2. RUXIENCE [Suspect]
     Active Substance: RITUXIMAB-PVVR
     Dosage: 1000 MG DOSE 2
     Route: 042
     Dates: start: 20210420, end: 20210527
  3. RUXIENCE [Suspect]
     Active Substance: RITUXIMAB-PVVR
     Dosage: 1000 MG, CYCLIC (DAY 1 AND DAY 15)
     Route: 042
     Dates: start: 20220421, end: 20220505
  4. RUXIENCE [Suspect]
     Active Substance: RITUXIMAB-PVVR
     Dosage: 1000 MG, CYCLIC (DAY 1 AND DAY 15)
     Route: 042
     Dates: start: 20221027, end: 20221110
  5. RUXIENCE [Suspect]
     Active Substance: RITUXIMAB-PVVR
     Dosage: 1000 MG, CYCLIC (1000 MG, DAY 1 AND DAY 15)
     Route: 042
     Dates: start: 20230601, end: 20230619
  6. RUXIENCE [Suspect]
     Active Substance: RITUXIMAB-PVVR
     Dosage: 1000 MG, CYCLIC (1000 MG, DAY 1 AND DAY 15)
     Route: 042
     Dates: start: 20231220, end: 20240103
  7. RUXIENCE [Suspect]
     Active Substance: RITUXIMAB-PVVR
     Dosage: 1000 MG, CYCLIC (1000 MG, DAY 1 AND DAY 15)
     Route: 042
     Dates: start: 20240610, end: 20240624
  8. RUXIENCE [Suspect]
     Active Substance: RITUXIMAB-PVVR
     Dosage: 1000 MG, CYCLIC (1000 MG, DAY 1 AND DAY 15)
     Route: 042
     Dates: start: 20241209, end: 20241223
  9. RUXIENCE [Suspect]
     Active Substance: RITUXIMAB-PVVR
     Dosage: 1000 MG, CYCLIC (1000 MG, DAY 1 AND DAY 15)
     Route: 042
     Dates: start: 20250623
  10. RUXIENCE [Suspect]
     Active Substance: RITUXIMAB-PVVR
     Dosage: 1000 MG, CYCLIC (1000 MG, DAY 1 AND DAY 15)
     Route: 042
     Dates: start: 20250708
  11. METHOTREXATE [Concomitant]
     Active Substance: METHOTREXATE
     Indication: Rheumatoid arthritis
     Dosage: 25 MG, WEEKLY
     Route: 058

REACTIONS (1)
  - Breast cancer [Unknown]
